FAERS Safety Report 4767194-X (Version None)
Quarter: 2005Q3

REPORT INFORMATION
  Report Type: 
  Country: None (occurrence: None)
  Receive Date: 20050912
  Receipt Date: 20050912
  Transmission Date: 20060218
  Serious: No
  Sender: FDA-Public Use
  Company Number: None

PATIENT
  Sex: Male
  Weight: 131.5431 kg

DRUGS (6)
  1. OXYCONTIN [Suspect]
     Indication: ANKYLOSING SPONDYLITIS
     Dosage: 80MGM X Q12H
  2. OXYCONTIN [Suspect]
     Indication: INTERVERTEBRAL DISC DEGENERATION
     Dosage: 80MGM X Q12H
  3. OXYCONTIN [Suspect]
     Indication: MYELOPATHY
     Dosage: 80MGM X Q12H
  4. METHADONE HCL [Concomitant]
  5. NORVASC [Concomitant]
  6. DIOVAN [Concomitant]

REACTIONS (5)
  - ANKYLOSING SPONDYLITIS [None]
  - IMPAIRED WORK ABILITY [None]
  - INTERVERTEBRAL DISC DEGENERATION [None]
  - JOINT RANGE OF MOTION DECREASED [None]
  - MOBILITY DECREASED [None]
